FAERS Safety Report 7570859-8 (Version None)
Quarter: 2011Q2

REPORT INFORMATION
  Report Type: 
  Country: None (occurrence: None)
  Receive Date: 20110624
  Receipt Date: 20110608
  Transmission Date: 20111010
  Serious: No
  Sender: FDA-Public Use
  Company Number: US-B.I. PHARMACEUTICALS,INC./RIDGEFIELD-2011-BP-12817BP

PATIENT
  Sex: Female

DRUGS (7)
  1. RANITIDINE [Concomitant]
  2. AMBIEN CR [Concomitant]
     Indication: INSOMNIA
     Dosage: 12.5 MG
     Route: 048
  3. DIOVAN [Concomitant]
     Indication: HYPERTENSION
     Dosage: 320 MG
     Route: 048
  4. BONIVA [Concomitant]
  5. PRADAXA [Suspect]
     Indication: ATRIAL FIBRILLATION
     Dosage: 300 MG
     Route: 048
     Dates: start: 20110426
  6. RYTHMOL [Concomitant]
     Indication: ATRIAL FIBRILLATION
     Dosage: 450 MG
     Route: 048
  7. ESTROGENIC SUBSTANCE [Concomitant]
     Dosage: 2 MG
     Route: 048

REACTIONS (5)
  - ABDOMINAL PAIN UPPER [None]
  - FATIGUE [None]
  - DYSPEPSIA [None]
  - DIARRHOEA [None]
  - FLATULENCE [None]
